FAERS Safety Report 7297500-6 (Version None)
Quarter: 2011Q1

REPORT INFORMATION
  Report Type: 
  Country: None (occurrence: None)
  Receive Date: 20110216
  Receipt Date: 20110211
  Transmission Date: 20110831
  Serious: Yes (Hospitalization, Other)
  Sender: FDA-Public Use
  Company Number: US-PFIZER INC-2010146135

PATIENT
  Sex: Female

DRUGS (13)
  1. VENTOLIN [Concomitant]
     Indication: ASTHMA
     Dosage: UNK
  2. ADVAIR [Concomitant]
     Indication: ASTHMA
     Dosage: UNK
     Dates: start: 20050101
  3. AMOXICILLIN [Concomitant]
     Indication: ANTIBIOTIC THERAPY
     Dosage: UNK
     Dates: start: 20030101
  4. CHANTIX [Suspect]
     Indication: SMOKING CESSATION THERAPY
     Dosage: UNK
     Dates: start: 20080911, end: 20081011
  5. BENADRYL [Concomitant]
     Indication: NASOPHARYNGITIS
     Dosage: UNK
     Dates: start: 20070101, end: 20100101
  6. TYLENOL [Concomitant]
     Indication: PAIN
     Dosage: UNK
     Dates: start: 20070101, end: 20090101
  7. AMOXICILLIN [Concomitant]
     Indication: BRONCHITIS
  8. AMOXICILLIN [Concomitant]
     Indication: OROPHARYNGEAL PAIN
  9. BENADRYL [Concomitant]
     Indication: BRONCHITIS
  10. TYLENOL W/ CODEINE NO. 3 [Concomitant]
     Indication: PAIN
     Dosage: UNK
     Dates: start: 20070101, end: 20090101
  11. IBUPROFEN [Concomitant]
     Indication: PAIN
     Dosage: UNK
     Dates: start: 20030101
  12. ALBUTEROL [Concomitant]
     Indication: ASTHMA
     Dosage: UNK
  13. MOTRIN [Concomitant]
     Indication: PAIN
     Dosage: UNK
     Dates: start: 20030101

REACTIONS (13)
  - HOMICIDAL IDEATION [None]
  - LOSS OF CONSCIOUSNESS [None]
  - INSOMNIA [None]
  - AMNESIA [None]
  - PANIC ATTACK [None]
  - VISUAL IMPAIRMENT [None]
  - FALL [None]
  - ANXIETY [None]
  - JOINT INJURY [None]
  - AGORAPHOBIA [None]
  - SUICIDAL IDEATION [None]
  - PARANOIA [None]
  - DEPRESSION [None]
